FAERS Safety Report 21686399 (Version 3)
Quarter: 2022Q4

REPORT INFORMATION
  Report Type: Report from Study
  Country: FR (occurrence: FR)
  Receive Date: 20221206
  Receipt Date: 20221207
  Transmission Date: 20230112
  Serious: No
  Sender: FDA-Public Use
  Company Number: FR-Global Blood Therapeutics Inc-FR-GBT-22-03476

PATIENT
  Age: 26 Year
  Sex: Female

DRUGS (8)
  1. VOXELOTOR [Suspect]
     Active Substance: VOXELOTOR
     Indication: Haemoconcentration
     Route: 048
     Dates: start: 20211019
  2. VOXELOTOR [Suspect]
     Active Substance: VOXELOTOR
     Indication: Haemoconcentration
     Route: 048
     Dates: start: 20220426
  3. OXBRYTA [Suspect]
     Active Substance: VOXELOTOR
     Indication: Haemoconcentration
     Dates: start: 20211019, end: 20220426
  4. OXBRYTA [Suspect]
     Active Substance: VOXELOTOR
     Indication: Haemoconcentration
     Route: 048
     Dates: start: 20220426
  5. FOLIC ACID [Concomitant]
     Active Substance: FOLIC ACID
     Indication: Product used for unknown indication
  6. VALSARTAN [Concomitant]
     Active Substance: VALSARTAN
     Indication: Product used for unknown indication
  7. HYDROXYUREA [Concomitant]
     Active Substance: HYDROXYUREA
     Indication: Product used for unknown indication
  8. DEFERASIROX [Concomitant]
     Active Substance: DEFERASIROX
     Indication: Product used for unknown indication

REACTIONS (3)
  - Haemoconcentration [Recovered/Resolved]
  - Asthenia [Recovered/Resolved]
  - Off label use [Unknown]

NARRATIVE: CASE EVENT DATE: 20220406
